FAERS Safety Report 7283368-0 (Version None)
Quarter: 2011Q1

REPORT INFORMATION
  Report Type: 
  Country: None (occurrence: None)
  Receive Date: 20110209
  Receipt Date: 20100615
  Transmission Date: 20110831
  Serious: Yes (Other)
  Sender: FDA-Public Use
  Company Number: A0866797A

PATIENT
  Age: 16 Year
  Sex: Female

DRUGS (1)
  1. PAXIL [Suspect]
     Indication: HEADACHE
     Route: 065
     Dates: start: 20030101

REACTIONS (1)
  - EXTRAPYRAMIDAL DISORDER [None]
